FAERS Safety Report 25428167 (Version 1)
Quarter: 2025Q2

REPORT INFORMATION
  Report Type: Spontaneous
  Country: US (occurrence: US)
  Receive Date: 20250612
  Receipt Date: 20250612
  Transmission Date: 20250717
  Serious: No
  Sender: CIPLA
  Company Number: US-CIPLA LTD.-2025US06811

PATIENT

DRUGS (3)
  1. DICLOFENAC [Suspect]
     Active Substance: DICLOFENAC
     Indication: Arthralgia
     Route: 061
     Dates: end: 20250528
  2. DICLOFENAC [Suspect]
     Active Substance: DICLOFENAC
     Indication: Axillary pain
  3. DICLOFENAC [Suspect]
     Active Substance: DICLOFENAC
     Indication: Pain in extremity

REACTIONS (1)
  - Off label use [Unknown]
